FAERS Safety Report 14487765 (Version 1)
Quarter: 2018Q1

REPORT INFORMATION
  Report Type: Spontaneous
  Country: BR (occurrence: BR)
  Receive Date: 20180205
  Receipt Date: 20180205
  Transmission Date: 20180509
  Serious: Yes (Hospitalization)
  Sender: FDA-Public Use
  Company Number: BR-BAYER-2018-023117

PATIENT
  Age: 93 Year
  Sex: Female

DRUGS (2)
  1. ULTRAVIST [Suspect]
     Active Substance: IOPROMIDE
     Indication: COMPUTERISED TOMOGRAM
     Dosage: UNK, ONCE
     Dates: start: 20180201, end: 20180201
  2. ULTRAVIST [Suspect]
     Active Substance: IOPROMIDE
     Indication: ABDOMINAL PAIN

REACTIONS (4)
  - Dyspnoea [None]
  - Disorientation [None]
  - Air embolism [None]
  - Tachycardia [None]

NARRATIVE: CASE EVENT DATE: 20180201
